FAERS Safety Report 8502919-9 (Version None)
Quarter: 2012Q3

REPORT INFORMATION
  Report Type: 
  Country: None (occurrence: None)
  Receive Date: 20120711
  Receipt Date: 20120706
  Transmission Date: 20120928
  Serious: Yes (Other)
  Sender: FDA-Public Use
  Company Number: US-PFIZER INC-2012124027

PATIENT
  Sex: Female
  Weight: 79.4 kg

DRUGS (6)
  1. CRESTOR [Concomitant]
     Indication: BLOOD CHOLESTEROL INCREASED
     Dosage: 10 MG, DAILY
  2. ZOLOFT [Suspect]
     Dosage: 100 MG, DAILY
     Dates: start: 20120522
  3. ZOLOFT [Suspect]
     Indication: DEPRESSION
     Dosage: 150 MG, DAILY
     Dates: start: 20040101, end: 20120521
  4. SEROQUEL [Suspect]
     Indication: DEPRESSION
     Dosage: UNK
     Dates: end: 20111201
  5. XANAX [Concomitant]
     Indication: ANXIETY
     Dosage: 1 MG, 4X/DAY
  6. SEROQUEL [Suspect]
     Indication: ANXIETY

REACTIONS (3)
  - DEPRESSION [None]
  - DRUG INEFFECTIVE [None]
  - ACTIVITIES OF DAILY LIVING IMPAIRED [None]
